FAERS Safety Report 10247680 (Version 2)
Quarter: 2014Q3

REPORT INFORMATION
  Report Type: Spontaneous
  Country: US (occurrence: US)
  Receive Date: 20140619
  Receipt Date: 20140724
  Transmission Date: 20150326
  Serious: Yes (Other)
  Sender: FDA-Public Use
  Company Number: US-PFIZER INC-2014168445

PATIENT
  Age: 39 Year
  Sex: Female
  Weight: 56.69 kg

DRUGS (2)
  1. CELEBREX [Suspect]
     Active Substance: CELECOXIB
     Indication: CARPAL TUNNEL SYNDROME
     Dosage: 200 MG, 2X/DAY
     Route: 048
     Dates: start: 20020513, end: 20030410
  2. CELEBREX [Suspect]
     Active Substance: CELECOXIB
     Indication: INFLAMMATION

REACTIONS (17)
  - Cardiac murmur [Not Recovered/Not Resolved]
  - Thermal burn [Not Recovered/Not Resolved]
  - Renal disorder [Not Recovered/Not Resolved]
  - Neurotoxicity [Not Recovered/Not Resolved]
  - Immune system disorder [Not Recovered/Not Resolved]
  - Arthralgia [Not Recovered/Not Resolved]
  - Sleep disorder [Not Recovered/Not Resolved]
  - Lymphopenia [Not Recovered/Not Resolved]
  - Anaemia [Not Recovered/Not Resolved]
  - Lipoatrophy [Not Recovered/Not Resolved]
  - Visual acuity reduced transiently [Not Recovered/Not Resolved]
  - Vitamin D deficiency [Not Recovered/Not Resolved]
  - Stevens-Johnson syndrome [Not Recovered/Not Resolved]
  - Inflammation [Not Recovered/Not Resolved]
  - Muscle disorder [Not Recovered/Not Resolved]
  - Alopecia [Not Recovered/Not Resolved]
  - Lupus-like syndrome [Not Recovered/Not Resolved]

NARRATIVE: CASE EVENT DATE: 2003
